FAERS Safety Report 12975235 (Version 1)
Quarter: 2016Q4

REPORT INFORMATION
  Report Type: Report from Study
  Country: US (occurrence: US)
  Receive Date: 20161125
  Receipt Date: 20161125
  Transmission Date: 20170207
  Serious: No
  Sender: FDA-Public Use
  Company Number: US-009507513-1611USA010277

PATIENT

DRUGS (7)
  1. DEXAMETHASONE. [Suspect]
     Active Substance: DEXAMETHASONE
     Dosage: WITH DARZALEX:THAT DAY 20 MG ORAL; ALSO ON EVERY OTHER WEEK INFUSION: 40MG PO ON NO INFUSION WEEK
     Route: 048
     Dates: start: 200805
  2. EMPLICITI [Suspect]
     Active Substance: ELOTUZUMAB
     Indication: PLASMA CELL MYELOMA
     Dosage: UNK
  3. VELCADE [Suspect]
     Active Substance: BORTEZOMIB
     Indication: PLASMA CELL MYELOMA
     Dosage: UNK
     Dates: start: 2008
  4. DARZALEX [Suspect]
     Active Substance: DARATUMUMAB
     Indication: PLASMA CELL MYELOMA
     Dosage: UNK
  5. DEXAMETHASONE. [Suspect]
     Active Substance: DEXAMETHASONE
     Indication: PLASMA CELL MYELOMA
     Dosage: WITH EMPLICITI:20 MG DAY BEFORE AND 20MG WITH INFUSION/WITH DARZALEX:20 MG INFUSED
     Dates: start: 200805
  6. DEXAMETHASONE. [Suspect]
     Active Substance: DEXAMETHASONE
     Indication: PLASMA CELL MYELOMA
     Dosage: WITH DARZALEX:THAT DAY 20 MG ORAL; ALSO ON EVERY OTHER WEEK INFUSION: 40MG PO ON NO INFUSION WEEK
     Route: 048
     Dates: start: 200805
  7. REVLIMID [Suspect]
     Active Substance: LENALIDOMIDE
     Indication: PLASMA CELL MYELOMA
     Dosage: UNK

REACTIONS (4)
  - Insomnia [Not Recovered/Not Resolved]
  - Nervousness [Recovering/Resolving]
  - Affective disorder [Recovering/Resolving]
  - Weight increased [Not Recovered/Not Resolved]
